FAERS Safety Report 6267738-5 (Version None)
Quarter: 2009Q3

REPORT INFORMATION
  Report Type: 
  Country: None (occurrence: None)
  Receive Date: 20090710
  Receipt Date: 20090622
  Transmission Date: 20100115
  Serious: Yes (Hospitalization, Other)
  Sender: FDA-Public Use
  Company Number: ADE2009-0637

PATIENT
  Age: 61 Year
  Sex: Female

DRUGS (1)
  1. CEFUROXIME AXETIL [Suspect]
     Dosage: 250MG - ORAL
     Route: 048

REACTIONS (18)
  - ANAPHYLACTIC SHOCK [None]
  - ARTERIOSCLEROSIS [None]
  - BLOOD PRESSURE DECREASED [None]
  - CHEST PAIN [None]
  - CONFUSIONAL STATE [None]
  - DIASTOLIC DYSFUNCTION [None]
  - DYSPNOEA [None]
  - ELECTROCARDIOGRAM ST SEGMENT ELEVATION [None]
  - FATIGUE [None]
  - GENERALISED ERYTHEMA [None]
  - KOUNIS SYNDROME [None]
  - NAUSEA [None]
  - PARAESTHESIA [None]
  - PRURITUS [None]
  - TYPE 2 DIABETES MELLITUS [None]
  - VENTRICULAR HYPOKINESIA [None]
  - VERTIGO [None]
  - VOMITING [None]
